FAERS Safety Report 8043097-2 (Version None)
Quarter: 2012Q1

REPORT INFORMATION
  Report Type: 
  Country: None (occurrence: None)
  Receive Date: 20120112
  Receipt Date: 20120104
  Transmission Date: 20120608
  Serious: Yes (Other)
  Sender: FDA-Public Use
  Company Number: CHPA2012US000549

PATIENT
  Age: 54 Year
  Sex: Male

DRUGS (4)
  1. INHALATION THERAPY [Concomitant]
     Dosage: UNK DF, UNK
  2. DRUG THERAPY NOS [Concomitant]
     Dosage: UNK DF, UNK
  3. BUCKLEY'S CHEST CONGESTION [Suspect]
     Indication: EMPHYSEMA
     Dosage: 4 TSP, UP TO 3 TIMES PER DAY
     Route: 048
  4. CARDIAC THERAPY [Concomitant]
     Dosage: UNK DF, UNK

REACTIONS (3)
  - HERPES ZOSTER [None]
  - DRUG DEPENDENCE [None]
  - OFF LABEL USE [None]
